FAERS Safety Report 24726950 (Version 2)
Quarter: 2025Q1

REPORT INFORMATION
  Report Type: Spontaneous
  Country: AU (occurrence: AU)
  Receive Date: 20241212
  Receipt Date: 20250207
  Transmission Date: 20250409
  Serious: Yes (Hospitalization, Other)
  Sender: OTSUKA
  Company Number: AU-OTSUKA-2024_032351

PATIENT
  Sex: Female

DRUGS (4)
  1. ABILIFY [Suspect]
     Active Substance: ARIPIPRAZOLE
     Indication: Depression
     Route: 065
  2. ABILIFY [Suspect]
     Active Substance: ARIPIPRAZOLE
     Indication: Anxiety
  3. ABILIFY MAINTENA [Suspect]
     Active Substance: ARIPIPRAZOLE
     Indication: Depression
     Route: 065
     Dates: start: 202303, end: 202310
  4. ABILIFY MAINTENA [Suspect]
     Active Substance: ARIPIPRAZOLE
     Indication: Anxiety

REACTIONS (26)
  - Dependence [Unknown]
  - Abortion spontaneous [Unknown]
  - Suicidal ideation [Unknown]
  - Tardive dyskinesia [Unknown]
  - Dystonia [Unknown]
  - Syncope [Unknown]
  - Suicide attempt [Unknown]
  - Post-traumatic stress disorder [Unknown]
  - Delusional disorder, unspecified type [Unknown]
  - Illness [Unknown]
  - Obsessive-compulsive disorder [Unknown]
  - Protrusion tongue [Unknown]
  - Mental disorder [Not Recovered/Not Resolved]
  - Disorientation [Unknown]
  - Persecutory delusion [Unknown]
  - Hostility [Unknown]
  - Aggression [Unknown]
  - Agitation [Unknown]
  - Gambling [Unknown]
  - Insomnia [Unknown]
  - Dizziness [Unknown]
  - Tremor [Unknown]
  - Impulsive behaviour [Unknown]
  - Refusal of treatment by patient [Unknown]
  - Off label use [Unknown]
  - Maternal exposure during pregnancy [Unknown]

NARRATIVE: CASE EVENT DATE: 20240101
